FAERS Safety Report 4309492-X (Version None)
Quarter: 2004Q1

REPORT INFORMATION
  Report Type: 
  Country: None (occurrence: None)
  Receive Date: 20040227
  Receipt Date: 20040219
  Transmission Date: 20041129
  Serious: Yes (Other)
  Sender: FDA-Public Use
  Company Number: PHEH2004US02154

PATIENT
  Sex: Female

DRUGS (3)
  1. ESTRADERM [Suspect]
     Route: 062
     Dates: start: 19920101, end: 19950101
  2. PREMARIN [Suspect]
     Dates: start: 19850101, end: 19920101
  3. PREMPRO (PREMARIN;CYCRIN 14/14) [Suspect]
     Dates: start: 19960101, end: 19970101

REACTIONS (5)
  - BREAST CANCER [None]
  - BREAST OPERATION [None]
  - CARDIAC DISORDER [None]
  - LYMPHADENECTOMY [None]
  - LYMPHOEDEMA [None]
